FAERS Safety Report 5477152-8 (Version None)
Quarter: 2007Q4

REPORT INFORMATION
  Report Type: 
  Country: None (occurrence: None)
  Receive Date: 20071004
  Receipt Date: 20071002
  Transmission Date: 20080405
  Serious: Yes (Other)
  Sender: FDA-Public Use
  Company Number: A0627042A

PATIENT
  Sex: Female

DRUGS (3)
  1. BUPROPION HCL [Suspect]
     Indication: MAJOR DEPRESSION
     Dosage: 450MG PER DAY
     Route: 048
     Dates: start: 20060601, end: 20060901
  2. WELLBUTRIN XL [Suspect]
     Indication: MAJOR DEPRESSION
     Dosage: 450MG PER DAY
     Route: 048
     Dates: start: 20061001, end: 20061113
  3. NO CONCURRENT MEDICATION [Concomitant]

REACTIONS (3)
  - ABORTION SPONTANEOUS [None]
  - ANXIETY [None]
  - NERVOUSNESS [None]
